FAERS Safety Report 5500012-0 (Version None)
Quarter: 2007Q4

REPORT INFORMATION
  Report Type: 
  Country: None (occurrence: None)
  Receive Date: 20071026
  Receipt Date: 20071016
  Transmission Date: 20080405
  Serious: Yes (Other)
  Sender: FDA-Public Use
  Company Number: JP-PFIZER INC-2007088373

PATIENT
  Age: 21 Year
  Sex: Female

DRUGS (4)
  1. ZOLOFT [Suspect]
     Indication: DEPRESSION
     Dosage: DAILY DOSE:100MG
     Route: 048
  2. PAXIL [Suspect]
     Indication: SOCIAL PHOBIA
     Dosage: DAILY DOSE:10MG
     Route: 048
  3. AMOXAPINE [Concomitant]
     Route: 048
  4. ABILIT [Concomitant]
     Route: 048

REACTIONS (1)
  - LOSS OF CONSCIOUSNESS [None]
